FAERS Safety Report 7668821-X (Version None)
Quarter: 2011Q3

REPORT INFORMATION
  Report Type: 
  Country: None (occurrence: None)
  Receive Date: 20110808
  Receipt Date: 20110728
  Transmission Date: 20111222
  Serious: Yes (Hospitalization)
  Sender: FDA-Public Use
  Company Number: FR-AMGEN-FRASP2011038246

PATIENT
  Age: 77 Year
  Sex: Male

DRUGS (5)
  1. CINACALCET HYDROCHLORIDE [Suspect]
     Indication: PRODUCT USED FOR UNKNOWN INDICATION
     Dosage: 30 MG, UNK
     Route: 048
     Dates: start: 20110118
  2. BISOPROLOL FUMARATE [Concomitant]
     Dosage: 25 MG, UNK
     Route: 048
     Dates: start: 20110301, end: 20110307
  3. PAROXETINE HCL [Concomitant]
     Dosage: 20 MG, UNK
     Route: 048
     Dates: start: 20110118
  4. TRAZODONE HCL [Concomitant]
     Dosage: 100 MG, UNK
     Dates: start: 20110303, end: 20110307
  5. COVERSYL                           /00790702/ [Concomitant]
     Dosage: 5 MG, UNK
     Route: 048
     Dates: start: 20110118

REACTIONS (2)
  - RENAL FAILURE [None]
  - LIVER DISORDER [None]
